FAERS Safety Report 19770595 (Version 3)
Quarter: 2021Q3

REPORT INFORMATION
  Report Type: Report from Study
  Country: NL (occurrence: NL)
  Receive Date: 20210831
  Receipt Date: 20210903
  Transmission Date: 20211014
  Serious: Yes (Other)
  Sender: FDA-Public Use
  Company Number: NL-SA-2021SA287000

PATIENT
  Age: 60 Year

DRUGS (19)
  1. LEVOCETIRIZINE [Concomitant]
     Active Substance: LEVOCETIRIZINE
     Dosage: 5 MG, QD
  2. FUROSEMIDE. [Concomitant]
     Active Substance: FUROSEMIDE
     Dosage: 20 MG, QD
  3. VISIDIC [Concomitant]
  4. CLOPIDOGREL [Concomitant]
     Active Substance: CLOPIDOGREL BISULFATE
     Dosage: 75 MG, QD
  5. MONTELUKAST [Concomitant]
     Active Substance: MONTELUKAST SODIUM
     Dosage: 10 MG, QD
  6. VENTOLIN [Concomitant]
     Active Substance: ALBUTEROL SULFATE
     Dosage: 100 UG (100UG/DO)
  7. PREDNISON [Concomitant]
     Active Substance: PREDNISONE
     Dosage: 10 MG
  8. KETANSERINE [Concomitant]
     Dosage: 20 MG, BID
  9. GENTAMYCIN [GENTAMICIN] [Concomitant]
     Active Substance: GENTAMICIN
  10. CEFALEXIN [Concomitant]
     Active Substance: CEPHALEXIN
     Dosage: 4DD 1 GR
  11. EZETROL [Concomitant]
     Active Substance: EZETIMIBE
     Dosage: 10 MG, QD
  12. FENPROCOUMON [Concomitant]
     Active Substance: PHENPROCOUMON
     Dosage: 3 MG
  13. OMEPRAZOL [OMEPRAZOLE] [Concomitant]
     Active Substance: OMEPRAZOLE
     Dosage: 40 MG, QD
  14. CEFTRIAXON [Concomitant]
     Active Substance: CEFTRIAXONE
  15. DUPILUMAB [Suspect]
     Active Substance: DUPILUMAB
     Indication: DERMATITIS ATOPIC
     Dosage: 300 MG, QOW
     Dates: start: 20190109
  16. CALCIUM CARBONATE. [Concomitant]
     Active Substance: CALCIUM CARBONATE
     Dosage: UNK (1.25GR/400IE)
  17. SPIRONOLACTON [Concomitant]
     Active Substance: SPIRONOLACTONE
     Dosage: 25 MG, QD
  18. ALENDRONINEZUUR [Concomitant]
     Active Substance: ALENDRONIC ACID
     Dosage: 70 MG, QD
  19. ATORVASTATINE [ATORVASTATIN] [Concomitant]
     Active Substance: ATORVASTATIN
     Dosage: 10 MG, QD

REACTIONS (2)
  - Ichthyosis [Not Recovered/Not Resolved]
  - Spinal cord herniation [Unknown]

NARRATIVE: CASE EVENT DATE: 20190310
